FAERS Safety Report 7502270-X (Version None)
Quarter: 2011Q2

REPORT INFORMATION
  Report Type: 
  Country: None (occurrence: None)
  Receive Date: 20110525
  Receipt Date: 20110510
  Transmission Date: 20111010
  Serious: No
  Sender: FDA-Public Use
  Company Number: US-B.I. PHARMACEUTICALS,INC./RIDGEFIELD-2011-BP-12761BP

PATIENT
  Age: 67 Year
  Sex: Female

DRUGS (7)
  1. DILTIAZEM [Concomitant]
     Indication: HYPERTENSION
  2. LASIX [Concomitant]
     Indication: GENERALISED OEDEMA
  3. ATENOLOL [Concomitant]
     Indication: HYPERTENSION
     Dosage: 25 MG
     Route: 048
  4. DIGOXIN [Concomitant]
     Indication: ATRIAL FIBRILLATION
  5. KLOR-CON [Concomitant]
     Indication: BLOOD POTASSIUM DECREASED
  6. PRADAXA [Suspect]
     Indication: ATRIAL FIBRILLATION
     Route: 048
     Dates: start: 20110330, end: 20110423
  7. COUMADIN [Concomitant]
     Indication: ATRIAL FIBRILLATION
     Dates: start: 20110424

REACTIONS (2)
  - WEIGHT DECREASED [None]
  - ABDOMINAL PAIN [None]
